FAERS Safety Report 7731112-2 (Version None)
Quarter: 2011Q3

REPORT INFORMATION
  Report Type: 
  Country: None (occurrence: None)
  Receive Date: 20110906
  Receipt Date: 20110906
  Transmission Date: 20111222
  Serious: Yes (Death)
  Sender: FDA-Public Use
  Company Number: None

PATIENT
  Age: 78 Year
  Sex: Female
  Weight: 46.266 kg

DRUGS (1)
  1. LYRICA [Suspect]

REACTIONS (2)
  - ASPHYXIA [None]
  - THINKING ABNORMAL [None]
